FAERS Safety Report 8914162 (Version 1)
Quarter: 2012Q4

REPORT INFORMATION
  Report Type: 
  Country: JP (occurrence: JP)
  Receive Date: 20121119
  Receipt Date: 20121119
  Transmission Date: 20130627
  Serious: Yes (Hospitalization, Other)
  Sender: FDA-Public Use
  Company Number: JP-009507513-1211JPN007079

PATIENT
  Age: 65 Year
  Sex: Female
  Weight: 47 kg

DRUGS (6)
  1. PEGINTRON [Suspect]
     Indication: CHRONIC HEPATITIS C
     Dosage: 1.5 Microgram per kilograms, qw,daily dose unknown
     Route: 058
     Dates: start: 20120910, end: 20120920
  2. REBETOL [Suspect]
     Indication: CHRONIC HEPATITIS C
     Dosage: 600 mg, qd
     Route: 048
     Dates: start: 20120910, end: 20120917
  3. REBETOL [Suspect]
     Dosage: 400 mg, qd
     Route: 048
     Dates: start: 20120920, end: 20120923
  4. TELAVIC [Suspect]
     Indication: CHRONIC HEPATITIS C
     Dosage: 1500mg,qd
     Route: 048
     Dates: start: 20120910, end: 20120917
  5. AMLODIPINE [Concomitant]
     Dosage: 5 mg, qd,formulation:POR
     Route: 048
  6. GOODMIN [Concomitant]
     Dosage: 0.25 mg, qd
     Route: 048

REACTIONS (2)
  - Dyspnoea [Recovered/Resolved]
  - Haemoglobin decreased [Recovered/Resolved]
